FAERS Safety Report 18971862 (Version 1)
Quarter: 2021Q1

REPORT INFORMATION
  Report Type: Spontaneous
  Country: JP (occurrence: JP)
  Receive Date: 20210305
  Receipt Date: 20210305
  Transmission Date: 20210420
  Serious: Yes (Other)
  Sender: FDA-Public Use
  Company Number: JP-LUPIN PHARMACEUTICALS INC.-2021-02792

PATIENT
  Age: 44 Year
  Sex: Female
  Weight: 71.5 kg

DRUGS (2)
  1. HYDROCORTISONE. [Suspect]
     Active Substance: HYDROCORTISONE
     Dosage: 20 MILLIGRAM, QD (STOPPED)
     Route: 048
  2. HYDROCORTISONE. [Suspect]
     Active Substance: HYDROCORTISONE
     Indication: SUPPLEMENTATION THERAPY
     Dosage: 30 MILLIGRAM, QD
     Route: 048

REACTIONS (3)
  - Basedow^s disease [Recovering/Resolving]
  - Steroid withdrawal syndrome [Unknown]
  - Inappropriate thyroid stimulating hormone secretion [Recovering/Resolving]
